FAERS Safety Report 7380410-3 (Version None)
Quarter: 2011Q1

REPORT INFORMATION
  Report Type: 
  Country: None (occurrence: None)
  Receive Date: 20110329
  Receipt Date: 20110318
  Transmission Date: 20110831
  Serious: Yes (Other)
  Sender: FDA-Public Use
  Company Number: AU-JNJFOC-20110307669

PATIENT
  Sex: Male

DRUGS (6)
  1. STELARA [Suspect]
     Route: 058
  2. MICARDIS [Concomitant]
  3. STELARA [Suspect]
     Route: 058
  4. STELARA [Suspect]
     Indication: PSORIASIS
     Route: 058
  5. STELARA [Suspect]
     Route: 058
  6. AMIODARONE HCL [Concomitant]

REACTIONS (1)
  - ANKLE ARTHROPLASTY [None]
